FAERS Safety Report 7986362-7 (Version None)
Quarter: 2011Q4

REPORT INFORMATION
  Report Type: 
  Country: None (occurrence: None)
  Receive Date: 20111216
  Receipt Date: 20101228
  Transmission Date: 20120403
  Serious: No
  Sender: FDA-Public Use
  Company Number: US-GLAXOSMITHKLINE-A0901704A

PATIENT
  Age: 55 Year
  Sex: Female

DRUGS (5)
  1. CELEXA [Concomitant]
  2. PREMPRO [Concomitant]
  3. COREG CR [Suspect]
     Indication: HYPERTENSION
     Dosage: 12.5MG TWICE PER DAY
     Route: 048
     Dates: start: 20101020, end: 20101101
  4. PREDNISONE [Concomitant]
  5. BYSTOLIC [Concomitant]

REACTIONS (4)
  - DYSPNOEA [None]
  - YAWNING [None]
  - ANXIETY [None]
  - CHEST DISCOMFORT [None]
